FAERS Safety Report 9257013 (Version 1)
Quarter: 2013Q2

REPORT INFORMATION
  Report Type: Spontaneous
  Country: US (occurrence: None)
  Receive Date: 20130424
  Receipt Date: 20130424
  Transmission Date: 20140414
  Serious: No
  Sender: FDA-Public Use
  Company Number: None

PATIENT
  Age: 83 Year
  Sex: Female
  Weight: 64.86 kg

DRUGS (3)
  1. CIPROFLOXACIN [Suspect]
     Indication: GASTRIC INFECTION
     Dosage: 500 MG TAB 1  X TWICE DAY
     Dates: start: 20120802
  2. CIPROFLOXACIN [Suspect]
     Indication: PAIN
     Dosage: 500 MG TAB 1  X TWICE DAY
     Dates: start: 20120802
  3. METRONIDAZOLE [Suspect]
     Dosage: 250MG TAB 2 X TWICE DAY
     Dates: start: 20120802

REACTIONS (1)
  - Urticaria [None]
